FAERS Safety Report 8900764 (Version 2)
Quarter: 2012Q4

REPORT INFORMATION
  Report Type: 
  Country: JP (occurrence: JP)
  Receive Date: 20121109
  Receipt Date: 20121126
  Transmission Date: 20130627
  Serious: Yes (Other)
  Sender: FDA-Public Use
  Company Number: JP-ASTELLAS-2012US010889

PATIENT
  Age: 66 Year
  Sex: Male

DRUGS (2)
  1. TARCEVA [Suspect]
     Indication: LUNG NEOPLASM MALIGNANT
     Dosage: UNK
     Route: 048
     Dates: start: 2012
  2. TARCEVA [Suspect]
     Dosage: UNK
     Route: 048
     Dates: start: 2012, end: 2012

REACTIONS (2)
  - Pleurisy [Recovering/Resolving]
  - Glossitis [Recovering/Resolving]
